FAERS Safety Report 7675107-6 (Version None)
Quarter: 2011Q3

REPORT INFORMATION
  Report Type: 
  Country: None (occurrence: None)
  Receive Date: 20110810
  Receipt Date: 20110805
  Transmission Date: 20111222
  Serious: Yes (Hospitalization)
  Sender: FDA-Public Use
  Company Number: FR-MERCK-1108FRA00037

PATIENT
  Age: 25 Year
  Sex: Male

DRUGS (11)
  1. CALCIUM CARBONATE AND CHOLECALCIFEROL [Concomitant]
     Route: 065
     Dates: start: 20110101
  2. METHOTREXATE [Concomitant]
     Route: 065
     Dates: start: 20110211
  3. FOSAMAX [Suspect]
     Route: 048
     Dates: start: 20110517, end: 20110517
  4. PREDNISONE [Concomitant]
     Route: 065
     Dates: start: 20110205
  5. NEFOPAM HYDROCHLORIDE [Concomitant]
     Route: 065
  6. OMEPRAZOLE [Concomitant]
     Route: 048
     Dates: start: 20110101
  7. INFLIXIMAB [Concomitant]
     Route: 041
     Dates: start: 20110323, end: 20110323
  8. ACETAMINOPHEN [Concomitant]
     Route: 065
  9. FOLIC ACID [Concomitant]
     Route: 065
     Dates: start: 20110211
  10. INFLIXIMAB [Concomitant]
     Route: 041
     Dates: start: 20110413, end: 20110413
  11. TRAMADOL HYDROCHLORIDE [Concomitant]
     Route: 065

REACTIONS (1)
  - LOSS OF CONSCIOUSNESS [None]
